FAERS Safety Report 6930424-X (Version None)
Quarter: 2010Q3

REPORT INFORMATION
  Report Type: 
  Country: None (occurrence: None)
  Receive Date: 20100813
  Receipt Date: 20100728
  Transmission Date: 20110219
  Serious: Yes (Hospitalization)
  Sender: FDA-Public Use
  Company Number: THQ2010A02165

PATIENT
  Age: 61 Year
  Sex: Male

DRUGS (13)
  1. ATACAND [Suspect]
     Dosage: 16 MG (16 MG, 1 IN 1 D) PER ORAL
     Route: 048
     Dates: start: 20090101
  2. ACTOPLUS MET [Suspect]
     Dosage: 15 MG + 850 MG, 2 DF DAILY PER ORAL
     Route: 048
     Dates: start: 20090101
  3. INDAPAMIDE [Suspect]
     Dosage: 1.5 MG (1.5 MG, 1 IN 1 D), PER ORAL
     Route: 048
     Dates: start: 20090101
  4. GLUCOPHAGE [Concomitant]
  5. REPAGLINIDE [Concomitant]
  6. CORDARONE [Concomitant]
  7. DILTIAZEM HYDROCHLORIDE [Concomitant]
  8. KOREL (ALL OTHER THERAPEUTIC PRODUCTS) [Concomitant]
  9. PLAVIX [Concomitant]
  10. DISCOTRINE (GLYCERYL TRINITRATE) [Concomitant]
  11. SINGULAIR [Concomitant]
  12. SERETIDE (SALMETEROL) [Concomitant]
  13. FORADIL [Concomitant]

REACTIONS (1)
  - ECZEMA [None]
